FAERS Safety Report 11509875 (Version 1)
Quarter: 2015Q3

REPORT INFORMATION
  Report Type: Spontaneous
  Country: US (occurrence: US)
  Receive Date: 20150915
  Receipt Date: 20150915
  Transmission Date: 20151125
  Serious: No
  Sender: FDA-Public Use
  Company Number: US-JNJFOC-20150423871

PATIENT
  Age: 24 Month
  Sex: Male
  Weight: 15.88 kg

DRUGS (2)
  1. CHILDRENS MOTRIN [Suspect]
     Active Substance: IBUPROFEN
     Indication: PYREXIA
     Dosage: EVERY 6-8 HOURS
     Route: 048
     Dates: start: 20150403
  2. TYLENOL CHILDREN GRAPE [Concomitant]
     Indication: PYREXIA
     Dosage: EVERY 6-8 HOURS
     Route: 048
     Dates: start: 20150403, end: 20150405

REACTIONS (1)
  - Underdose [Unknown]
